FAERS Safety Report 5272235-X (Version None)
Quarter: 2007Q1

REPORT INFORMATION
  Report Type: 
  Country: None (occurrence: None)
  Receive Date: 20061214
  Receipt Date: 20061004
  Transmission Date: 20070707
  Serious: Yes (Hospitalization, Other)
  Sender: FDA-Public Use
  Company Number: 2006092169

PATIENT
  Age: 79 Year
  Sex: Female
  Weight: 69.4003 kg

DRUGS (5)
  1. BEXTRA [Suspect]
     Indication: ARTHRITIS
     Dosage: 20 MG 920 MG, 1 IN1 D)
     Dates: start: 20030825, end: 20040126
  2. ASPIRIN [Concomitant]
  3. CELEBREX [Concomitant]
  4. TYLENOL [Concomitant]
  5. VIOXX [Concomitant]

REACTIONS (1)
  - MYOCARDIAL INFARCTION [None]
